FAERS Safety Report 11573841 (Version 1)
Quarter: 2015Q3

REPORT INFORMATION
  Report Type: Spontaneous
  Country: IT (occurrence: IT)
  Receive Date: 20150929
  Receipt Date: 20150929
  Transmission Date: 20151125
  Serious: Yes (Hospitalization, Other)
  Sender: FDA-Public Use
  Company Number: IT-BRISTOL-MYERS SQUIBB COMPANY-BMS-2015-062458

PATIENT
  Age: 78 Year
  Sex: Male

DRUGS (1)
  1. COUMADIN [Suspect]
     Active Substance: WARFARIN SODIUM
     Indication: ATRIAL FIBRILLATION
     Dosage: UNK
     Route: 065
     Dates: start: 20030101

REACTIONS (12)
  - International normalised ratio increased [Recovered/Resolved]
  - Cerebellar ischaemia [Unknown]
  - Coronary artery bypass [Unknown]
  - Peripheral artery stenosis [Unknown]
  - Osteoarthritis [Unknown]
  - Renal impairment [Unknown]
  - Myocardial ischaemia [Unknown]
  - Spinal operation [Unknown]
  - Pleural effusion [Unknown]
  - Confusional state [Unknown]
  - Overdose [Recovered/Resolved]
  - Somnolence [Unknown]

NARRATIVE: CASE EVENT DATE: 2011
